FAERS Safety Report 8414167-1 (Version None)
Quarter: 2012Q2

REPORT INFORMATION
  Report Type: 
  Country: None (occurrence: None)
  Receive Date: 20120605
  Receipt Date: 20120531
  Transmission Date: 20120825
  Serious: Yes (Death, Hospitalization, Other)
  Sender: FDA-Public Use
  Company Number: IT-ABBOTT-12P-083-0917452-00

PATIENT
  Sex: Female
  Weight: 71 kg

DRUGS (11)
  1. TICLID [Concomitant]
     Indication: PRODUCT USED FOR UNKNOWN INDICATION
     Route: 048
     Dates: start: 20040601, end: 20120321
  2. NOVORAPID NOVOLET [Concomitant]
     Indication: PRODUCT USED FOR UNKNOWN INDICATION
     Route: 058
     Dates: start: 20081101, end: 20120321
  3. HUMIRA [Suspect]
     Indication: PSORIASIS
     Route: 050
     Dates: start: 20120320, end: 20120320
  4. HUMIRA [Suspect]
     Dates: start: 20120313, end: 20120313
  5. NOVOLOG MIX 70/30 [Concomitant]
     Indication: PRODUCT USED FOR UNKNOWN INDICATION
     Route: 058
     Dates: start: 20081101, end: 20120321
  6. ANTIHYPERTENSIVE AGENT [Concomitant]
     Indication: HYPERTENSION
  7. VASEXTEN [Concomitant]
     Indication: PRODUCT USED FOR UNKNOWN INDICATION
     Route: 048
     Dates: start: 20100101, end: 20120321
  8. LANSOPRAZOLE [Concomitant]
     Indication: PRODUCT USED FOR UNKNOWN INDICATION
     Route: 048
     Dates: start: 20061101, end: 20120321
  9. ATORVASTATIN CALCIUM [Concomitant]
     Indication: PRODUCT USED FOR UNKNOWN INDICATION
     Route: 048
     Dates: start: 20041101, end: 20120321
  10. VASERETIC [Concomitant]
     Indication: PRODUCT USED FOR UNKNOWN INDICATION
     Route: 048
     Dates: start: 20040601, end: 20120321
  11. DIFIX [Concomitant]
     Indication: PRODUCT USED FOR UNKNOWN INDICATION
     Route: 048
     Dates: start: 20100101, end: 20120321

REACTIONS (14)
  - ARTERIOSCLEROSIS [None]
  - MULTI-ORGAN FAILURE [None]
  - DYSPNOEA [None]
  - CORONARY ARTERY STENOSIS [None]
  - ORTHOPNOEA [None]
  - FATIGUE [None]
  - ANGINA PECTORIS [None]
  - UNEVALUABLE EVENT [None]
  - INCORRECT DOSE ADMINISTERED [None]
  - MYOCARDIAL INFARCTION [None]
  - NECROSIS ISCHAEMIC [None]
  - CHEST PAIN [None]
  - CARDIAC FAILURE [None]
  - CEREBROVASCULAR ACCIDENT [None]
